FAERS Safety Report 9604107 (Version 3)
Quarter: 2013Q4

REPORT INFORMATION
  Report Type: Report from Study
  Country: CA (occurrence: CA)
  Receive Date: 20131008
  Receipt Date: 20131010
  Transmission Date: 20140711
  Serious: Yes (Hospitalization)
  Sender: FDA-Public Use
  Company Number: CA-ROCHE-1268939

PATIENT
  Age: 56 Year
  Sex: Male

DRUGS (3)
  1. PEGASYS [Suspect]
     Indication: CHRONIC HEPATITIS C
     Route: 058
     Dates: start: 20130528
  2. COPEGUS [Suspect]
     Indication: CHRONIC HEPATITIS C
     Dosage: 42 TABLET/WEEK
     Route: 048
     Dates: start: 20130528
  3. PRAVASTATIN [Concomitant]

REACTIONS (2)
  - Dehydration [Not Recovered/Not Resolved]
  - Neoplasm malignant [Not Recovered/Not Resolved]
